FAERS Safety Report 6525257-2 (Version None)
Quarter: 2010Q1

REPORT INFORMATION
  Report Type: 
  Country: None (occurrence: None)
  Receive Date: 20100104
  Receipt Date: 20091222
  Transmission Date: 20100710
  Serious: Yes (Other)
  Sender: FDA-Public Use
  Company Number: BR-PFIZER INC-2009283753

PATIENT
  Age: 15 Year
  Sex: Female

DRUGS (2)
  1. EPELIN [Suspect]
     Indication: RELAXATION THERAPY
     Dosage: UNK
     Route: 048
     Dates: start: 20040101
  2. HIDANTAL [Concomitant]
     Indication: CONVULSION
     Dosage: UNK

REACTIONS (5)
  - ABASIA [None]
  - COMMUNICATION DISORDER [None]
  - CONVULSION [None]
  - DISEASE PROGRESSION [None]
  - HYPOKINESIA [None]
